FAERS Safety Report 4475161-9 (Version None)
Quarter: 2004Q4

REPORT INFORMATION
  Report Type: 
  Country: None (occurrence: None)
  Receive Date: 20041013
  Receipt Date: 20041013
  Transmission Date: 20050328
  Serious: Yes (Hospitalization)
  Sender: FDA-Public Use
  Company Number: None

PATIENT
  Age: 68 Year
  Sex: Female

DRUGS (1)
  1. PIPERACILLIN/TAZOBACTAM [Suspect]
     Indication: ALPHA HAEMOLYTIC STREPTOCOCCAL INFECTION

REACTIONS (4)
  - LIVER ABSCESS [None]
  - NEPHRITIS INTERSTITIAL [None]
  - NEUTROPENIA [None]
  - RASH MORBILLIFORM [None]
